FAERS Safety Report 6937726-1 (Version None)
Quarter: 2010Q3

REPORT INFORMATION
  Report Type: 
  Country: None (occurrence: None)
  Receive Date: 20100820
  Receipt Date: 20100820
  Transmission Date: 20110219
  Serious: Yes (Life-Threatening, Hospitalization)
  Sender: FDA-Public Use
  Company Number: None

PATIENT
  Age: 67 Year
  Sex: Female
  Weight: 77.1115 kg

DRUGS (3)
  1. VORINOSTAT (SAHA) -300MG/MERCK + CO., INC [Suspect]
     Indication: LUNG NEOPLASM MALIGNANT
     Dosage: 300MG/WITH RT-5X WK/ORAL
     Route: 048
     Dates: start: 20100527, end: 20100604
  2. VORINOSTAT (SAHA) -300MG/MERCK + CO., INC [Suspect]
     Indication: METASTASES TO CENTRAL NERVOUS SYSTEM
     Dosage: 300MG/WITH RT-5X WK/ORAL
     Route: 048
     Dates: start: 20100527, end: 20100604
  3. EXTERNAL RADIATION THERAPY [Concomitant]

REACTIONS (11)
  - CARDIOVASCULAR DISORDER [None]
  - CHRONIC OBSTRUCTIVE PULMONARY DISEASE [None]
  - DEHYDRATION [None]
  - EPISTAXIS [None]
  - FLUID OVERLOAD [None]
  - HYPERKALAEMIA [None]
  - HYPOTENSION [None]
  - LEUKOCYTOSIS [None]
  - PULMONARY EMBOLISM [None]
  - RENAL FAILURE [None]
  - RESPIRATORY DISTRESS [None]
